FAERS Safety Report 21234953 (Version 1)
Quarter: 2022Q3

REPORT INFORMATION
  Report Type: Spontaneous
  Country: US (occurrence: None)
  Receive Date: 20220821
  Receipt Date: 20220821
  Transmission Date: 20221027
  Serious: No
  Sender: FDA-Public Use
  Company Number: 2022A267814

PATIENT

DRUGS (1)
  1. FASLODEX [Suspect]
     Active Substance: FULVESTRANT
     Route: 030

REACTIONS (4)
  - Injection site pain [Recovered/Resolved]
  - Device difficult to use [Unknown]
  - Wrong technique in device usage process [Recovered/Resolved]
  - Off label use [Unknown]
